FAERS Safety Report 10253449 (Version 2)
Quarter: 2014Q3

REPORT INFORMATION
  Report Type: Spontaneous
  Country: US (occurrence: US)
  Receive Date: 20140623
  Receipt Date: 20140702
  Transmission Date: 20150326
  Serious: No
  Sender: FDA-Public Use
  Company Number: US-TEVA-488297USA

PATIENT
  Sex: Female
  Weight: 103.97 kg

DRUGS (2)
  1. CARBIDOPA W/LEVODOPA [Concomitant]
     Active Substance: CARBIDOPA\LEVODOPA
     Indication: PARKINSON^S DISEASE
     Dosage: CARBIDOPA 25MG/LEVODOPA 100MG
  2. AZILECT [Suspect]
     Active Substance: RASAGILINE MESYLATE
     Indication: PARKINSON^S DISEASE
     Dates: start: 20140402

REACTIONS (11)
  - Diarrhoea [Unknown]
  - Dizziness [Not Recovered/Not Resolved]
  - Speech disorder [Unknown]
  - Tremor [Unknown]
  - Grip strength decreased [Unknown]
  - Discomfort [Unknown]
  - Back disorder [Unknown]
  - Malaise [Unknown]
  - Chest pain [Unknown]
  - Hallucination, auditory [Not Recovered/Not Resolved]
  - Gait disturbance [Unknown]
